FAERS Safety Report 26203895 (Version 1)
Quarter: 2025Q4

REPORT INFORMATION
  Report Type: Spontaneous
  Country: EU (occurrence: EU)
  Receive Date: 20251226
  Receipt Date: 20251226
  Transmission Date: 20260118
  Serious: Yes (Other)
  Sender: ALEXION PHARMACEUTICALS
  Company Number: EU-AstraZeneca-2024A204956

PATIENT
  Age: 36 Year
  Sex: Female

DRUGS (6)
  1. ANIFROLUMAB [Suspect]
     Active Substance: ANIFROLUMAB
     Indication: Lupus nephritis
     Dosage: 300MG EVERY 4 WEEKS/LN CLASS 5/LN CLASS 3+5, FREQUENCY: Q4WK
  2. CANDESARTAN [Concomitant]
     Active Substance: CANDESARTAN
  3. HYDROXYCHLOROQUINE [Concomitant]
     Active Substance: HYDROXYCHLOROQUINE
  4. PREDNISONE [Concomitant]
     Active Substance: PREDNISONE
     Dosage: 7.5 MILLIGRAM, QD
  5. MYCOPHENOLATE MOFETIL [Concomitant]
     Active Substance: MYCOPHENOLATE MOFETIL
     Dosage: 500 MILLIGRAM, QD
  6. LUPKYNIS [Concomitant]
     Active Substance: VOCLOSPORIN
     Dosage: AT INCREASING DOSE: 1-0-1, 2-0-2, 3-0-3

REACTIONS (2)
  - Pyoderma gangrenosum [Recovered/Resolved]
  - Off label use [Unknown]
